FAERS Safety Report 11714228 (Version 3)
Quarter: 2016Q2

REPORT INFORMATION
  Report Type: Report from Study
  Country: DE (occurrence: DE)
  Receive Date: 20151109
  Receipt Date: 20160411
  Transmission Date: 20160815
  Serious: Yes (Other)
  Sender: FDA-Public Use
  Company Number: DE-JNJFOC-20151102807

PATIENT
  Age: 11 Year
  Sex: Male
  Weight: 34.9 kg

DRUGS (3)
  1. 5-ASA [Concomitant]
     Active Substance: MESALAMINE
     Route: 048
  2. REMICADE [Suspect]
     Active Substance: INFLIXIMAB
     Indication: COLITIS ULCERATIVE
     Route: 042
  3. 5-ASA [Concomitant]
     Active Substance: MESALAMINE
     Route: 054

REACTIONS (1)
  - Colitis [Recovered/Resolved]

NARRATIVE: CASE EVENT DATE: 20151020
